FAERS Safety Report 6542922-1 (Version None)
Quarter: 2010Q1

REPORT INFORMATION
  Report Type: 
  Country: None (occurrence: None)
  Receive Date: 20100120
  Receipt Date: 20100115
  Transmission Date: 20100710
  Serious: Yes (Death, Other)
  Sender: FDA-Public Use
  Company Number: GB-BRISTOL-MYERS SQUIBB COMPANY-14493423

PATIENT
  Age: 33 Year
  Sex: Female
  Weight: 138 kg

DRUGS (3)
  1. ABILIFY [Suspect]
     Indication: SCHIZOAFFECTIVE DISORDER
     Route: 048
     Dates: start: 20080818
  2. RISPERDAL CONSTA [Concomitant]
  3. STELAZINE [Concomitant]

REACTIONS (5)
  - COUGH [None]
  - HEADACHE [None]
  - MYALGIA [None]
  - SUDDEN DEATH [None]
  - VOMITING [None]
